FAERS Safety Report 15963124 (Version 1)
Quarter: 2019Q1

REPORT INFORMATION
  Report Type: Spontaneous
  Country: US (occurrence: US)
  Receive Date: 20190214
  Receipt Date: 20190214
  Transmission Date: 20190417
  Serious: No
  Sender: FDA-Public Use
  Company Number: US-ALLERGAN-1859871US

PATIENT
  Age: 58 Year
  Sex: Female
  Weight: 65.76 kg

DRUGS (4)
  1. TAZORAC [Suspect]
     Active Substance: TAZAROTENE
     Dosage: UNK UNK, QPM
     Route: 061
     Dates: start: 20181226
  2. TAZORAC [Suspect]
     Active Substance: TAZAROTENE
     Indication: ACNE
     Dosage: UNK UNK, QAM
     Route: 061
     Dates: end: 20181227
  3. TONER [Concomitant]
     Dosage: UNK
  4. NIGHT CREAM [Concomitant]
     Dosage: UNK

REACTIONS (6)
  - Application site pruritus [Not Recovered/Not Resolved]
  - Inappropriate schedule of product administration [Unknown]
  - Application site swelling [Not Recovered/Not Resolved]
  - Application site exfoliation [Not Recovered/Not Resolved]
  - Application site erythema [Not Recovered/Not Resolved]
  - Application site pain [Not Recovered/Not Resolved]

NARRATIVE: CASE EVENT DATE: 20181227
